FAERS Safety Report 4433717-3 (Version None)
Quarter: 2004Q3

REPORT INFORMATION
  Report Type: 
  Country: None (occurrence: None)
  Receive Date: 20040825
  Receipt Date: 20040825
  Transmission Date: 20050211
  Serious: Yes (Hospitalization)
  Sender: FDA-Public Use
  Company Number: None

PATIENT
  Age: 39 Year
  Sex: Female
  Weight: 44.5 kg

DRUGS (2)
  1. TRIPTORELIN [Suspect]
     Dosage: 3.75 MG IM
     Route: 030
     Dates: start: 20040727
  2. ADJUVANT CHEMOTHRAPY [Concomitant]

REACTIONS (4)
  - CHILLS [None]
  - NEUTROPENIA [None]
  - PHARYNGOLARYNGEAL PAIN [None]
  - PYREXIA [None]
